FAERS Safety Report 8442566 (Version 6)
Quarter: 2013Q2

REPORT INFORMATION
  Report Type: Spontaneous
  Country: FR (occurrence: FR)
  Receive Date: 20120306
  Receipt Date: 20130503
  Transmission Date: 20140414
  Serious: Yes (Death, Other)
  Sender: FDA-Public Use
  Company Number: FR-PFIZER INC-2012058324

PATIENT
  Age: 95 Year
  Sex: Female

DRUGS (15)
  1. ARGANOVA [Suspect]
     Indication: HEPARIN-INDUCED THROMBOCYTOPENIA
     Dosage: 0.5 MG, 1 IN 1 HR
     Route: 042
     Dates: start: 20120201, end: 20120212
  2. ARGANOVA [Suspect]
     Dosage: 1.5 MG, 1 HR
     Route: 042
     Dates: start: 20120205, end: 20120205
  3. ARGANOVA [Suspect]
     Dosage: 0.7 MG, 1 HR
     Route: 042
     Dates: start: 20120206, end: 20120206
  4. ARGANOVA [Suspect]
     Dosage: OVERDOSE (DOSAGE UNSPECIFIED)
     Route: 042
     Dates: start: 20120212, end: 20120212
  5. ARGANOVA [Suspect]
     Dosage: 0.4 MG, 1 HR
     Route: 042
     Dates: start: 20120212, end: 20120212
  6. CARDENSIEL [Concomitant]
     Dosage: UNK
  7. CORDARONE [Concomitant]
     Dosage: UNK
  8. TRIATEC [Concomitant]
     Dosage: UNK
  9. LASILIX [Concomitant]
     Indication: RENAL FAILURE
     Dosage: UNK
  10. COUMADINE [Concomitant]
     Dosage: UNK
  11. CALCIPARINE [Concomitant]
     Indication: RENAL FAILURE
     Dosage: UNK
     Dates: start: 20120119, end: 20120131
  12. ROCEPHINE [Concomitant]
     Indication: PNEUMONIA
     Dosage: UNK
     Dates: start: 20120124, end: 20120130
  13. PIPERACILLIN/TAZOBACTAM [Concomitant]
     Indication: PNEUMONIA
     Dosage: UNK
     Dates: start: 20120130
  14. LOVENOX [Concomitant]
     Indication: PROPHYLAXIS
     Dosage: UNK
     Dates: end: 20120119
  15. GENTAMICIN [Concomitant]
     Indication: PNEUMONIA
     Dosage: UNK
     Dates: start: 20120124, end: 20120124

REACTIONS (3)
  - Gastrointestinal haemorrhage [Fatal]
  - Overdose [Unknown]
  - Overdose [Unknown]
